FAERS Safety Report 9069886 (Version 1)
Quarter: 2013Q1

REPORT INFORMATION
  Report Type: Report from Study
  Country: US (occurrence: US)
  Receive Date: 20130129
  Receipt Date: 20130129
  Transmission Date: 20140127
  Serious: No
  Sender: FDA-Public Use
  Company Number: US-ABBOTT-12P-163-0938436-00

PATIENT
  Age: 53 None
  Sex: Female
  Weight: 65.83 kg

DRUGS (5)
  1. HUMIRA 40 MG/0.8 ML PEN [Suspect]
     Indication: CROHN^S DISEASE
     Dates: start: 20120516, end: 20120516
  2. PANTOPRAZOLE [Concomitant]
     Indication: NAUSEA
  3. PANTOPRAZOLE [Concomitant]
     Indication: CROHN^S DISEASE
  4. ASACOL [Concomitant]
     Indication: CROHN^S DISEASE
  5. PREDNISONE [Concomitant]
     Indication: CROHN^S DISEASE

REACTIONS (10)
  - Monoplegia [Recovered/Resolved]
  - Hyperaesthesia [Recovered/Resolved]
  - Joint swelling [Recovered/Resolved]
  - Anorectal discomfort [Recovered/Resolved]
  - Erythema [Recovered/Resolved]
  - Localised oedema [Recovered/Resolved]
  - Muscle spasms [Recovered/Resolved]
  - Injection site pain [Recovered/Resolved]
  - Injection site erythema [Recovered/Resolved]
  - Nausea [Recovered/Resolved]
